FAERS Safety Report 6541719-6 (Version None)
Quarter: 2010Q1

REPORT INFORMATION
  Report Type: 
  Country: None (occurrence: None)
  Receive Date: 20100119
  Receipt Date: 20100112
  Transmission Date: 20100710
  Serious: Yes (Life-Threatening)
  Sender: FDA-Public Use
  Company Number: JP-BAYER-200912954BYL

PATIENT
  Age: 70 Year
  Sex: Male
  Weight: 46 kg

DRUGS (2)
  1. NEXAVAR [Suspect]
     Indication: RENAL CELL CARCINOMA
     Dosage: UNIT DOSE: 200 MG
     Route: 048
     Dates: start: 20090803, end: 20090808
  2. NEXAVAR [Suspect]
     Dosage: TOTAL DAILY DOSE: 800 MG  UNIT DOSE: 200 MG
     Route: 048
     Dates: start: 20090724

REACTIONS (8)
  - DECREASED APPETITE [None]
  - DIARRHOEA [None]
  - EOSINOPHIL COUNT INCREASED [None]
  - ERYTHEMA MULTIFORME [None]
  - NAUSEA [None]
  - PYREXIA [None]
  - RASH [None]
  - STOMATITIS [None]
